FAERS Safety Report 5619062-9 (Version None)
Quarter: 2008Q1

REPORT INFORMATION
  Report Type: 
  Country: None (occurrence: None)
  Receive Date: 20080207
  Receipt Date: 20080129
  Transmission Date: 20080703
  Serious: Yes (Other)
  Sender: FDA-Public Use
  Company Number: US-PFIZER INC-2008009468

PATIENT
  Sex: Female

DRUGS (2)
  1. CHANTIX [Suspect]
     Indication: EX-SMOKER
  2. SSRI [Concomitant]

REACTIONS (14)
  - ABDOMINAL PAIN [None]
  - ABNORMAL DREAMS [None]
  - ANXIETY [None]
  - CONSTIPATION [None]
  - CRYING [None]
  - FEAR [None]
  - GASTROINTESTINAL DISORDER [None]
  - IMPULSIVE BEHAVIOUR [None]
  - INSOMNIA [None]
  - MOOD SWINGS [None]
  - NAUSEA [None]
  - PHYSICAL ASSAULT [None]
  - SCREAMING [None]
  - SUICIDAL IDEATION [None]
